FAERS Safety Report 15291069 (Version 1)
Quarter: 2018Q3

REPORT INFORMATION
  Report Type: Spontaneous
  Country: BR (occurrence: BR)
  Receive Date: 20180817
  Receipt Date: 20180817
  Transmission Date: 20181010
  Serious: Yes (Life-Threatening, Hospitalization, Disabling, Other)
  Sender: FDA-Public Use
  Company Number: BR-JNJFOC-20180811947

PATIENT

DRUGS (2)
  1. INFLIXIMAB, RECOMBINANT [Suspect]
     Active Substance: INFLIXIMAB
     Indication: AUTOIMMUNE DISORDER
     Route: 042
  2. GOLIMUMAB [Suspect]
     Active Substance: GOLIMUMAB
     Indication: AUTOIMMUNE DISORDER
     Route: 058

REACTIONS (41)
  - Poisoning [Unknown]
  - Mediastinal disorder [Unknown]
  - Musculoskeletal disorder [Unknown]
  - Injury [Unknown]
  - Procedural complication [Unknown]
  - Pulmonary fibrosis [Unknown]
  - Connective tissue disorder [Unknown]
  - Cardiac disorder [Unknown]
  - Hepatobiliary disease [Unknown]
  - Skin disorder [Unknown]
  - Neoplasm malignant [Unknown]
  - Anaphylactic reaction [Unknown]
  - Anaphylactic shock [Unknown]
  - Neutropenic sepsis [Unknown]
  - Benign neoplasm [Unknown]
  - Medical procedure [Unknown]
  - Aplastic anaemia [Unknown]
  - Surgery [Unknown]
  - Respiratory disorder [Unknown]
  - Progressive multifocal leukoencephalopathy [Unknown]
  - Pancreatitis [Unknown]
  - Autoimmune hepatitis [Unknown]
  - Gastrointestinal disorder [Unknown]
  - Eye disorder [Unknown]
  - Urinary tract disorder [Unknown]
  - Spinal disorder [Unknown]
  - Deafness [Unknown]
  - Intestinal perforation [Unknown]
  - Infection [Unknown]
  - Infestation [Unknown]
  - Nervous system disorder [Unknown]
  - Lymphatic disorder [Unknown]
  - Immune system disorder [Unknown]
  - General symptom [Unknown]
  - Anaphylactoid reaction [Unknown]
  - Angioedema [Unknown]
  - Renal disorder [Unknown]
  - Angiopathy [Unknown]
  - Adverse event [Unknown]
  - Sudden hearing loss [Unknown]
  - Blood disorder [Unknown]
